FAERS Safety Report 24219701 (Version 2)
Quarter: 2024Q3

REPORT INFORMATION
  Report Type: Report from Study
  Country: DE (occurrence: DE)
  Receive Date: 20240817
  Receipt Date: 20240828
  Transmission Date: 20241016
  Serious: Yes (Congenital Anomaly, Other)
  Sender: AUROBINDO
  Company Number: DE-AUROBINDO-AUR-APL-2024-039775

PATIENT

DRUGS (2)
  1. LACOSAMIDE [Suspect]
     Active Substance: LACOSAMIDE
     Indication: Epilepsy
     Dosage: UNK
     Route: 065
  2. CARBAMAZEPINE [Suspect]
     Active Substance: CARBAMAZEPINE
     Indication: Epilepsy
     Dosage: UNK
     Route: 065

REACTIONS (3)
  - Hepatic arteriovenous malformation [Unknown]
  - Hydrops foetalis [Unknown]
  - Foetal exposure during pregnancy [Unknown]
